FAERS Safety Report 7888208-4 (Version None)
Quarter: 2011Q4

REPORT INFORMATION
  Report Type: 
  Country: None (occurrence: None)
  Receive Date: 20111103
  Receipt Date: 20111027
  Transmission Date: 20120403
  Serious: Yes (Other)
  Sender: FDA-Public Use
  Company Number: GB-BAYER-2011-106010

PATIENT
  Sex: Female

DRUGS (1)
  1. MIRENA [Suspect]
     Indication: MENORRHAGIA
     Dosage: UNK
     Dates: start: 20100101

REACTIONS (6)
  - VAGINITIS BACTERIAL [None]
  - FATIGUE [None]
  - URINARY TRACT INFECTION [None]
  - VAGINAL DISCHARGE [None]
  - ABDOMINAL PAIN [None]
  - DRUG HYPERSENSITIVITY [None]
